FAERS Safety Report 21943229 (Version 1)
Quarter: 2023Q1

REPORT INFORMATION
  Report Type: Spontaneous
  Country: US (occurrence: None)
  Receive Date: 20230202
  Receipt Date: 20230202
  Transmission Date: 20230418
  Serious: No
  Sender: FDA-Public Use
  Company Number: 2023A015362

PATIENT
  Age: 25249 Day
  Sex: Female
  Weight: 158.8 kg

DRUGS (1)
  1. BUDESONIDE\FORMOTEROL\GLYCOPYRRONIUM [Suspect]
     Active Substance: BUDESONIDE\FORMOTEROL\GLYCOPYRRONIUM
     Indication: Chronic obstructive pulmonary disease
     Dosage: TWO INHALATIONS TWO TIMES A DAY160UG/INHAL TWO TIMES A DAY
     Route: 055
     Dates: start: 202105

REACTIONS (6)
  - Dyspnoea [Unknown]
  - Dyspnoea exertional [Unknown]
  - Malaise [Unknown]
  - Abnormal dreams [Unknown]
  - Incorrect dose administered by device [Unknown]
  - Device delivery system issue [Unknown]

NARRATIVE: CASE EVENT DATE: 20230112
